FAERS Safety Report 21138788 (Version 2)
Quarter: 2022Q3

REPORT INFORMATION
  Report Type: Report from Study
  Country: CA (occurrence: CA)
  Receive Date: 20220727
  Receipt Date: 20220818
  Transmission Date: 20221027
  Serious: Yes (Other)
  Sender: FDA-Public Use
  Company Number: CA-MYLANLABS-2022M1080208

PATIENT
  Age: 23 Year
  Sex: Female
  Weight: 62 kg

DRUGS (4)
  1. CLOZAPINE [Suspect]
     Active Substance: CLOZAPINE
     Indication: Bipolar disorder
     Dosage: 100 MILLIGRAM, QD (DIE)
     Route: 048
     Dates: start: 20220618, end: 20220704
  2. CLOZAPINE [Suspect]
     Active Substance: CLOZAPINE
     Dosage: UNK
     Route: 065
     Dates: start: 20220623, end: 20220704
  3. LITHIUM [Concomitant]
     Active Substance: LITHIUM
     Dosage: UNK
     Route: 065
  4. SEROQUEL XR [Concomitant]
     Active Substance: QUETIAPINE FUMARATE
     Dosage: UNK
     Route: 065

REACTIONS (2)
  - Myocarditis [Unknown]
  - Therapy interrupted [Unknown]

NARRATIVE: CASE EVENT DATE: 20220704
